FAERS Safety Report 15151174 (Version 1)
Quarter: 2018Q3

REPORT INFORMATION
  Report Type: Spontaneous
  Country: US (occurrence: US)
  Receive Date: 20180716
  Receipt Date: 20180716
  Transmission Date: 20181010
  Serious: Yes (Other)
  Sender: FDA-Public Use
  Company Number: US-SA-2018SA189067

PATIENT
  Age: 63 Year
  Sex: Female

DRUGS (6)
  1. PREDNISONE. [Concomitant]
     Active Substance: PREDNISONE
  2. DIAZEPAM. [Concomitant]
     Active Substance: DIAZEPAM
  3. NOVOLOG [Concomitant]
     Active Substance: INSULIN ASPART
  4. AUBAGIO [Suspect]
     Active Substance: TERIFLUNOMIDE
     Dosage: 14 MG, QD
  5. AMOXICILLIN. [Concomitant]
     Active Substance: AMOXICILLIN
  6. FLUCONAZOLE. [Concomitant]
     Active Substance: FLUCONAZOLE

REACTIONS (2)
  - Multiple sclerosis relapse [Unknown]
  - Mobility decreased [Unknown]
